FAERS Safety Report 24164611 (Version 1)
Quarter: 2024Q3

REPORT INFORMATION
  Report Type: Spontaneous
  Country: CN (occurrence: CN)
  Receive Date: 20240801
  Receipt Date: 20240801
  Transmission Date: 20241017
  Serious: Yes (Other)
  Sender: MERCK
  Company Number: CN-009507513-2407CHN013776

PATIENT
  Age: 79 Year
  Sex: Female

DRUGS (1)
  1. INVANZ [Suspect]
     Active Substance: ERTAPENEM SODIUM
     Indication: Bacterial infection
     Dosage: 1 G, QD
     Route: 041
     Dates: start: 20240530, end: 20240531

REACTIONS (2)
  - Seizure [Recovering/Resolving]
  - Gaze palsy [Unknown]

NARRATIVE: CASE EVENT DATE: 20240531
